FAERS Safety Report 4924595-4 (Version None)
Quarter: 2006Q1

REPORT INFORMATION
  Report Type: 
  Country: None (occurrence: None)
  Receive Date: 20060222
  Receipt Date: 20060206
  Transmission Date: 20060701
  Serious: Yes (Death, Other)
  Sender: FDA-Public Use
  Company Number: 2006-00254

PATIENT
  Age: 73 Year
  Sex: Male

DRUGS (2)
  1. VELCADE [Suspect]
     Indication: MULTIPLE MYELOMA
     Dosage: 2.50 MG
     Dates: start: 20050926, end: 20051202
  2. NORVASC [Concomitant]

REACTIONS (3)
  - DISEASE PROGRESSION [None]
  - HAEMORRHAGE [None]
  - THROMBOCYTOPENIA [None]
